FAERS Safety Report 6939013-4 (Version None)
Quarter: 2010Q3

REPORT INFORMATION
  Report Type: 
  Country: None (occurrence: None)
  Receive Date: 20100824
  Receipt Date: 20100819
  Transmission Date: 20110219
  Serious: Yes (Death, Life-Threatening, Hospitalization, Other)
  Sender: FDA-Public Use
  Company Number: FR-ABBOTT-10P-056-0664606-00

PATIENT
  Sex: Male

DRUGS (14)
  1. NORVIR [Suspect]
     Indication: HIV INFECTION
     Route: 048
     Dates: start: 20040101
  2. ISENTRESS [Suspect]
     Indication: HIV INFECTION
     Route: 048
     Dates: start: 20100129, end: 20100304
  3. SUSTIVA [Suspect]
     Indication: HIV INFECTION
     Route: 048
     Dates: start: 20040101
  4. TELZIR [Suspect]
     Indication: HIV INFECTION
     Route: 048
     Dates: start: 20040101
  5. GLUCOVANCE [Suspect]
     Indication: TYPE 2 DIABETES MELLITUS
     Route: 048
     Dates: start: 20050101
  6. REVATIO [Suspect]
     Indication: PULMONARY HYPERTENSION
     Route: 048
     Dates: start: 20090701
  7. RISPERDAL [Concomitant]
     Indication: ANXIETY
     Route: 048
  8. RISPERDAL [Concomitant]
     Indication: DEPRESSION
  9. EFFEXOR [Concomitant]
     Indication: ANXIETY
     Route: 048
  10. EFFEXOR [Concomitant]
     Indication: DEPRESSION
  11. MEPRONIZINE [Concomitant]
     Indication: ANXIETY
     Route: 048
  12. MEPRONIZINE [Concomitant]
     Indication: DEPRESSION
  13. ATARAX [Concomitant]
     Indication: ANXIETY
     Route: 048
  14. ATARAX [Concomitant]
     Indication: DEPRESSION

REACTIONS (6)
  - ARRHYTHMIA [None]
  - DYSPNOEA [None]
  - HYPERLACTACIDAEMIA [None]
  - INSOMNIA [None]
  - METABOLIC ACIDOSIS [None]
  - SHOCK [None]
